FAERS Safety Report 7568234-5 (Version None)
Quarter: 2011Q2

REPORT INFORMATION
  Report Type: 
  Country: None (occurrence: None)
  Receive Date: 20110617
  Receipt Date: 20110608
  Transmission Date: 20111010
  Serious: Yes (Hospitalization)
  Sender: FDA-Public Use
  Company Number: 2009AC000413

PATIENT
  Age: 57 Year
  Sex: Female

DRUGS (38)
  1. DIGOXIN [Suspect]
     Indication: ATRIAL FIBRILLATION
     Dosage: 0.25 MG;QD;PO
     Route: 048
     Dates: start: 19980101, end: 20080201
  2. TENORMIN [Concomitant]
  3. METHADONE HCL [Concomitant]
  4. ASPIRIN [Concomitant]
  5. NEXIUM [Concomitant]
  6. PRAVACHOL [Concomitant]
  7. MICARDIS [Concomitant]
  8. FERROUS SULFATE TAB [Concomitant]
  9. DARVOCET [Concomitant]
  10. ZESTRIL [Concomitant]
  11. ZYRTEC [Concomitant]
  12. POTASSIUM [Concomitant]
  13. TAMBOCOR [Concomitant]
  14. DURATUSS [Concomitant]
  15. ADVAIR DISKUS 100/50 [Concomitant]
  16. FLEXERIL [Concomitant]
  17. LASIX [Concomitant]
  18. PROVACHOL [Concomitant]
  19. TRICOR [Concomitant]
  20. VITIMIN [Concomitant]
  21. MAXZIDE [Concomitant]
  22. FIBER TREE TABS [Concomitant]
  23. FLAXSEED OIL [Concomitant]
  24. IBUPROFEN [Concomitant]
  25. VALIUM [Concomitant]
  26. AMBIEN [Concomitant]
  27. PROZAC [Concomitant]
  28. CALCIUM CARBONATE [Concomitant]
  29. NORVASC [Concomitant]
  30. GLUCOSAMINE [Concomitant]
  31. LOVAZA [Concomitant]
  32. CLARITIN [Concomitant]
  33. NITROGLYCERIN [Concomitant]
  34. PRILOSEC [Concomitant]
  35. ATENOLOL [Concomitant]
  36. VITIMIN E [Concomitant]
  37. MYLANTA [Concomitant]
  38. ALBUTEROL SULFATE AUTOHALER [Concomitant]

REACTIONS (26)
  - VENTRICULAR EXTRASYSTOLES [None]
  - HYPERTENSION [None]
  - PALPITATIONS [None]
  - MUSCULOSKELETAL PAIN [None]
  - INJURY [None]
  - ECONOMIC PROBLEM [None]
  - SINUS BRADYCARDIA [None]
  - MYALGIA [None]
  - HYPOPNOEA [None]
  - ATRIOVENTRICULAR BLOCK [None]
  - SUPRAVENTRICULAR EXTRASYSTOLES [None]
  - THROAT TIGHTNESS [None]
  - NECK PAIN [None]
  - TACHYCARDIA [None]
  - DYSPNOEA [None]
  - NON-CARDIAC CHEST PAIN [None]
  - BACK PAIN [None]
  - BLOOD TRIGLYCERIDES INCREASED [None]
  - OEDEMA PERIPHERAL [None]
  - HYPOAESTHESIA [None]
  - STRESS [None]
  - HELICOBACTER GASTRITIS [None]
  - PRESYNCOPE [None]
  - BRADYCARDIA [None]
  - SLEEP APNOEA SYNDROME [None]
  - CHEST PAIN [None]
